FAERS Safety Report 6605013-7 (Version None)
Quarter: 2010Q1

REPORT INFORMATION
  Report Type: 
  Country: None (occurrence: None)
  Receive Date: 20100226
  Receipt Date: 20100218
  Transmission Date: 20100710
  Serious: Yes (Hospitalization)
  Sender: FDA-Public Use
  Company Number: US-BRISTOL-MYERS SQUIBB COMPANY-14984231

PATIENT
  Age: 76 Year
  Sex: Female

DRUGS (19)
  1. COUMADIN [Suspect]
     Indication: ATRIAL FIBRILLATION
     Dates: start: 20100101, end: 20100113
  2. HEPARIN SODIUM [Suspect]
  3. PLAVIX [Suspect]
     Route: 048
     Dates: end: 20100111
  4. ASPIRIN [Suspect]
     Dosage: UNK-11JAN2010;20JAN2010-UNK
     Route: 048
  5. LOVENOX [Suspect]
     Indication: ATRIAL FIBRILLATION
     Dosage: EXP DATES;30JUN2012 AND 31DEC2012
     Dates: start: 20100110
  6. LOVENOX [Suspect]
     Indication: THROMBOSIS PROPHYLAXIS
     Dosage: EXP DATES;30JUN2012 AND 31DEC2012
     Dates: start: 20100110
  7. SYNTHROID [Concomitant]
  8. BUSPAR [Concomitant]
  9. CENTRUM [Concomitant]
  10. POTASSIUM CHLORIDE [Concomitant]
  11. LASIX [Concomitant]
  12. METFORMIN HYDROCHLORIDE [Concomitant]
  13. NIFEDIPINE [Concomitant]
  14. NITROGLYCERIN [Concomitant]
  15. PREDNISONE [Concomitant]
  16. RANITIDINE [Concomitant]
  17. WELCHOL [Concomitant]
  18. ZETIA [Concomitant]
  19. QUINAPRIL [Concomitant]

REACTIONS (5)
  - ABDOMINAL WALL HAEMATOMA [None]
  - ANAEMIA [None]
  - ATRIAL FIBRILLATION [None]
  - DEHYDRATION [None]
  - NAUSEA [None]
